FAERS Safety Report 6171011-3 (Version None)
Quarter: 2009Q2

REPORT INFORMATION
  Report Type: 
  Country: None (occurrence: None)
  Receive Date: 20090428
  Receipt Date: 20090428
  Transmission Date: 20091009
  Serious: Yes (Other)
  Sender: FDA-Public Use
  Company Number: None

PATIENT
  Age: 48 Year
  Sex: Female
  Weight: 55.7924 kg

DRUGS (1)
  1. EFFEXOR [Suspect]
     Indication: ANXIETY
     Dosage: 37.5MG 1X DAY PO
     Route: 048
     Dates: start: 20090414, end: 20090414

REACTIONS (4)
  - DIZZINESS [None]
  - HEADACHE [None]
  - NAUSEA [None]
  - VOMITING [None]
